FAERS Safety Report 8107721-8 (Version None)
Quarter: 2012Q1

REPORT INFORMATION
  Report Type: 
  Country: None (occurrence: None)
  Receive Date: 20120202
  Receipt Date: 20120120
  Transmission Date: 20120608
  Serious: Yes (Hospitalization)
  Sender: FDA-Public Use
  Company Number: GB-JNJFOC-20111010796

PATIENT
  Sex: Male
  Weight: 30.2 kg

DRUGS (8)
  1. ANTIBIOTICS [Concomitant]
     Indication: CROHN'S DISEASE
  2. OMEPRAZOLE [Concomitant]
  3. ACETAMINOPHEN [Concomitant]
  4. REMICADE [Suspect]
     Indication: CROHN'S DISEASE
     Route: 042
     Dates: start: 20100219
  5. REMICADE [Suspect]
     Route: 042
     Dates: start: 20110317, end: 20110317
  6. METHOTREXATE [Concomitant]
     Indication: CROHN'S DISEASE
  7. ADALIMUMAB [Concomitant]
     Indication: CROHN'S DISEASE
     Dates: start: 20110919
  8. HYOSCINE BUTYLBROMIDE [Concomitant]

REACTIONS (2)
  - PNEUMOTHORAX [None]
  - CROHN'S DISEASE [None]
